FAERS Safety Report 10433974 (Version 2)
Quarter: 2014Q3

REPORT INFORMATION
  Report Type: Spontaneous
  Country: US (occurrence: US)
  Receive Date: 20140905
  Receipt Date: 20140905
  Transmission Date: 20150326
  Serious: Yes (Death, Hospitalization, Other)
  Sender: FDA-Public Use
  Company Number: US-009507513-2008-182753-NL

PATIENT
  Sex: Female
  Weight: 54.43 kg

DRUGS (1)
  1. NUVARING [Suspect]
     Active Substance: ETHINYL ESTRADIOL\ETONOGESTREL
     Indication: CONTRACEPTION
     Dosage: CONTINUING: NO
     Route: 067
     Dates: start: 200612, end: 20071104

REACTIONS (8)
  - Cellulitis [Unknown]
  - Acute respiratory distress syndrome [Fatal]
  - Cholecystitis infective [Unknown]
  - Toxic shock syndrome streptococcal [Fatal]
  - Respiratory failure [Fatal]
  - Cholecystitis [Unknown]
  - Multi-organ failure [Unknown]
  - Groin infection [Unknown]

NARRATIVE: CASE EVENT DATE: 20071104
